FAERS Safety Report 4274717-6 (Version None)
Quarter: 2004Q1

REPORT INFORMATION
  Report Type: 
  Country: None (occurrence: None)
  Receive Date: 20040115
  Receipt Date: 20031225
  Transmission Date: 20041129
  Serious: Yes (Hospitalization, Disabling)
  Sender: FDA-Public Use
  Company Number: JP_030901726

PATIENT
  Age: 62 Year
  Sex: Female
  Weight: 53 kg

DRUGS (6)
  1. ZYPREXA [Suspect]
     Indication: SCHIZOPHRENIA
     Dosage: 10 MG/DAY
     Dates: start: 20021201, end: 20030910
  2. SERENACE (HALOPERIDOL) [Concomitant]
  3. DEPAS (ETIZOLAM) [Concomitant]
  4. ARTANE (TRIHEHYPHENIDYL HYDROCHLORIDE) [Concomitant]
  5. CHLORPROMAZINE HCL [Concomitant]
  6. PURSENNIDE (SENNA LEAF) [Concomitant]

REACTIONS (14)
  - BRONCHITIS [None]
  - C-REACTIVE PROTEIN INCREASED [None]
  - CHEST DISCOMFORT [None]
  - COUGH [None]
  - ELECTROCARDIOGRAM Q WAVE ABNORMAL [None]
  - MALAISE [None]
  - OXYGEN SATURATION DECREASED [None]
  - PCO2 DECREASED [None]
  - PCO2 INCREASED [None]
  - PYREXIA [None]
  - RADIAL NERVE PALSY [None]
  - RESPIRATORY FAILURE [None]
  - SLEEP APNOEA SYNDROME [None]
  - WHITE BLOOD CELL COUNT INCREASED [None]
